FAERS Safety Report 8562711 (Version 3)
Quarter: 2013Q1

REPORT INFORMATION
  Report Type: Spontaneous
  Country: US (occurrence: None)
  Receive Date: 20120509
  Receipt Date: 20121023
  Transmission Date: 20140127
  Serious: Yes (Hospitalization)
  Sender: FDA-Public Use
  Company Number: 133444

PATIENT
  Age: 10 Year
  Sex: Male

DRUGS (1)
  1. DAUNORUBICIN HYDROCHLORIDE [Suspect]
     Indication: ACUTE LYMPHOCYTIC LEUKAEMIA
     Dates: start: 20120330

REACTIONS (8)
  - Hyponatraemia [None]
  - Inappropriate antidiuretic hormone secretion [None]
  - Dehydration [None]
  - Decreased appetite [None]
  - Weight decreased [None]
  - Hypophagia [None]
  - Abdominal pain [None]
  - Nausea [None]
